FAERS Safety Report 16520950 (Version 1)
Quarter: 2019Q3

REPORT INFORMATION
  Report Type: Spontaneous
  Country: US (occurrence: US)
  Receive Date: 20190703
  Receipt Date: 20190703
  Transmission Date: 20191004
  Serious: Yes (Hospitalization, Other)
  Sender: FDA-Public Use
  Company Number: US-AUROBINDO-AUR-APL-2019-034574

PATIENT

DRUGS (4)
  1. LEUCOVORIN. [Suspect]
     Active Substance: LEUCOVORIN
     Indication: DUCTAL ADENOCARCINOMA OF PANCREAS
     Dosage: UNK, (FOR 6 MONTHS)
     Route: 065
     Dates: start: 201603
  2. IRINOTECAN [Suspect]
     Active Substance: IRINOTECAN
     Indication: DUCTAL ADENOCARCINOMA OF PANCREAS
     Dosage: UNK, (FOR 6 MONTHS)
     Route: 065
     Dates: start: 201603
  3. FLUOROURACIL. [Suspect]
     Active Substance: FLUOROURACIL
     Indication: DUCTAL ADENOCARCINOMA OF PANCREAS
     Dosage: UNK (FOR 6 MONTHS)
     Route: 065
     Dates: start: 201603
  4. OXALIPLATIN. [Suspect]
     Active Substance: OXALIPLATIN
     Indication: DUCTAL ADENOCARCINOMA OF PANCREAS
     Dosage: UNK (FOR 6 MONTHS)
     Route: 065
     Dates: start: 201603

REACTIONS (11)
  - Hypotension [Unknown]
  - Dehydration [Unknown]
  - Nausea [Unknown]
  - Clostridium difficile colitis [Unknown]
  - Diarrhoea [Unknown]
  - Delirium [Unknown]
  - Syncope [Unknown]
  - Weight decreased [Unknown]
  - Abdominal pain upper [Unknown]
  - Mucosal inflammation [Unknown]
  - Vomiting [Unknown]

NARRATIVE: CASE EVENT DATE: 201606
